FAERS Safety Report 24007772 (Version 1)
Quarter: 2024Q2

REPORT INFORMATION
  Report Type: Spontaneous
  Country: TW (occurrence: TW)
  Receive Date: 20240625
  Receipt Date: 20240625
  Transmission Date: 20240716
  Serious: Yes (Other)
  Sender: FDA-Public Use
  Company Number: TW-ALKEM LABORATORIES LIMITED-TW-ALKEM-2024-12009

PATIENT

DRUGS (1)
  1. METFORMIN HYDROCHLORIDE [Suspect]
     Active Substance: METFORMIN HYDROCHLORIDE
     Indication: Type 2 diabetes mellitus
     Dosage: UNK
     Route: 065

REACTIONS (3)
  - Acute kidney injury [Unknown]
  - Lactic acidosis [Recovered/Resolved]
  - Blindness [Recovered/Resolved]
